FAERS Safety Report 20235652 (Version 7)
Quarter: 2023Q1

REPORT INFORMATION
  Report Type: Report from Study
  Country: DE (occurrence: DE)
  Receive Date: 20211228
  Receipt Date: 20230201
  Transmission Date: 20230417
  Serious: Yes (Hospitalization, Other)
  Sender: FDA-Public Use
  Company Number: DE-TAKEDA-2021TUS081338

PATIENT
  Age: 66 Year
  Sex: Female

DRUGS (23)
  1. TEDUGLUTIDE [Suspect]
     Active Substance: TEDUGLUTIDE
     Indication: Short-bowel syndrome
     Dosage: 2.9 MILLIGRAM, QD
     Route: 042
     Dates: start: 20200730, end: 20200921
  2. TEDUGLUTIDE [Suspect]
     Active Substance: TEDUGLUTIDE
     Indication: Short-bowel syndrome
     Dosage: 2.9 MILLIGRAM, QD
     Route: 042
     Dates: start: 20200730, end: 20200921
  3. TEDUGLUTIDE [Suspect]
     Active Substance: TEDUGLUTIDE
     Indication: Short-bowel syndrome
     Dosage: 2.9 MILLIGRAM, QD
     Route: 042
     Dates: start: 20200730, end: 20200921
  4. TEDUGLUTIDE [Suspect]
     Active Substance: TEDUGLUTIDE
     Indication: Short-bowel syndrome
     Dosage: 2.9 MILLIGRAM, QD
     Route: 042
     Dates: start: 20200730, end: 20200921
  5. TEDUGLUTIDE [Suspect]
     Active Substance: TEDUGLUTIDE
     Dosage: 2.8 MILLIGRAM, 4/WEEK
     Route: 042
     Dates: start: 20210110
  6. TEDUGLUTIDE [Suspect]
     Active Substance: TEDUGLUTIDE
     Dosage: 2.8 MILLIGRAM, 4/WEEK
     Route: 042
     Dates: start: 20210110
  7. TEDUGLUTIDE [Suspect]
     Active Substance: TEDUGLUTIDE
     Dosage: 2.8 MILLIGRAM, 4/WEEK
     Route: 042
     Dates: start: 20210110
  8. TEDUGLUTIDE [Suspect]
     Active Substance: TEDUGLUTIDE
     Dosage: 2.8 MILLIGRAM, 4/WEEK
     Route: 042
     Dates: start: 20210110
  9. TEDUGLUTIDE [Suspect]
     Active Substance: TEDUGLUTIDE
     Dosage: 2.8 MILLIGRAM, QD
     Route: 042
     Dates: start: 20210509, end: 20210522
  10. TEDUGLUTIDE [Suspect]
     Active Substance: TEDUGLUTIDE
     Dosage: 2.8 MILLIGRAM, QD
     Route: 042
     Dates: start: 20210509, end: 20210522
  11. TEDUGLUTIDE [Suspect]
     Active Substance: TEDUGLUTIDE
     Dosage: 2.8 MILLIGRAM, QD
     Route: 042
     Dates: start: 20210509, end: 20210522
  12. TEDUGLUTIDE [Suspect]
     Active Substance: TEDUGLUTIDE
     Dosage: 2.8 MILLIGRAM, QD
     Route: 042
     Dates: start: 20210509, end: 20210522
  13. Colibiogen [Concomitant]
     Dosage: UNK UNK, QD
  14. REPHALYSIN [Concomitant]
     Dosage: UNK UNK, TID
  15. FOLIC ACID [Concomitant]
     Active Substance: FOLIC ACID
     Dosage: 800 MILLIGRAM, QD
     Route: 048
  16. HERBALS [Concomitant]
     Active Substance: HERBALS
     Dosage: 140 MILLIGRAM, BID
     Route: 048
  17. MIRTAZAPINE [Concomitant]
     Active Substance: MIRTAZAPINE
     Indication: Sleep disorder
     Dosage: 15 MILLIGRAM, QD
     Route: 048
     Dates: start: 202109
  18. Mucofalk [Concomitant]
     Indication: Short-bowel syndrome
     Dosage: 5 GRAM, TID
     Route: 048
     Dates: start: 202106
  19. OPIUM TINCTURE [Concomitant]
     Active Substance: MORPHINE
     Indication: Short-bowel syndrome
     Dosage: 10 GTT DROPS, QID
     Route: 048
     Dates: start: 202106
  20. IMODIUM [Concomitant]
     Active Substance: LOPERAMIDE HYDROCHLORIDE
     Indication: Short-bowel syndrome
     Dosage: 2 MILLIGRAM
     Route: 060
     Dates: start: 202106
  21. IMODIUM [Concomitant]
     Active Substance: LOPERAMIDE HYDROCHLORIDE
     Dosage: 2 MILLIGRAM
     Route: 048
     Dates: start: 202210
  22. MAGNESIUM [Concomitant]
     Active Substance: MAGNESIUM
     Indication: Muscle spasms
     Dosage: 400.00 MILLIGRAM, QD
     Route: 048
     Dates: start: 202110
  23. AMINOPHYLLINE\QUININE SULFATE [Concomitant]
     Active Substance: AMINOPHYLLINE\QUININE SULFATE
     Indication: Muscle spasms
     Dosage: 200 MILLIGRAM, QD
     Route: 048
     Dates: start: 20211001

REACTIONS (8)
  - Rectal stenosis [Recovered/Resolved]
  - Hypervitaminosis [Recovered/Resolved]
  - Hypervitaminosis B12 [Recovered/Resolved]
  - Proctalgia [Recovered/Resolved]
  - Hypervitaminosis A [Recovered/Resolved]
  - C-reactive protein increased [Recovered/Resolved]
  - Sleep disorder [Recovered/Resolved]
  - Gastrointestinal stoma complication [Recovered/Resolved]

NARRATIVE: CASE EVENT DATE: 20210501
